FAERS Safety Report 7704969-9 (Version None)
Quarter: 2011Q3

REPORT INFORMATION
  Report Type: 
  Country: None (occurrence: None)
  Receive Date: 20110823
  Receipt Date: 20110820
  Transmission Date: 20111222
  Serious: No
  Sender: FDA-Public Use
  Company Number: US-PFIZER INC-2011192706

PATIENT
  Sex: Male
  Weight: 89 kg

DRUGS (3)
  1. LIPITOR [Suspect]
     Indication: BLOOD CHOLESTEROL INCREASED
     Dosage: 20 MG, DAILY
     Dates: start: 20110809
  2. LIPITOR [Suspect]
     Dosage: UNK
     Dates: end: 20110801
  3. NAPROXEN [Concomitant]
     Indication: BACK PAIN
     Dosage: 500 MG, 2X/DAY
     Route: 048
     Dates: start: 20110725

REACTIONS (2)
  - PAIN IN EXTREMITY [None]
  - HYPOAESTHESIA [None]
